FAERS Safety Report 8985172 (Version 1)
Quarter: 2012Q4

REPORT INFORMATION
  Report Type: 
  Country: US (occurrence: US)
  Receive Date: 20121226
  Receipt Date: 20121226
  Transmission Date: 20130627
  Serious: No
  Sender: FDA-Public Use
  Company Number: US-PFIZER INC-2012328367

PATIENT

DRUGS (2)
  1. LYRICA [Suspect]
     Dosage: UNK, 2x/day
  2. LYRICA [Suspect]
     Dosage: UNK, 1x/day

REACTIONS (2)
  - Head discomfort [Unknown]
  - Confusional state [Unknown]
